FAERS Safety Report 25359631 (Version 2)
Quarter: 2025Q2

REPORT INFORMATION
  Report Type: Report from Study
  Country: CA (occurrence: CA)
  Receive Date: 20250526
  Receipt Date: 20250630
  Transmission Date: 20250717
  Serious: Yes (Other)
  Sender: TAKEDA
  Company Number: CA-TAKEDA-2025TUS047024

PATIENT
  Age: 82 Year
  Sex: Female

DRUGS (10)
  1. HUMAN IMMUNOGLOBULIN G [Suspect]
     Active Substance: HUMAN IMMUNOGLOBULIN G
     Indication: Secondary immunodeficiency
  2. HUMAN IMMUNOGLOBULIN G [Suspect]
     Active Substance: HUMAN IMMUNOGLOBULIN G
     Dosage: 10 GRAM, 1/WEEK
     Dates: start: 20250515
  3. ACYCLOVIR [Concomitant]
     Active Substance: ACYCLOVIR
  4. APIXABAN [Concomitant]
     Active Substance: APIXABAN
  5. GABAPENTIN [Concomitant]
     Active Substance: GABAPENTIN
  6. PERCOCET [Concomitant]
     Active Substance: ACETAMINOPHEN\OXYCODONE HYDROCHLORIDE
  7. ZOPICLONE [Concomitant]
     Active Substance: ZOPICLONE
  8. LORAZEPAM [Concomitant]
     Active Substance: LORAZEPAM
  9. RISEDRONATE SODIUM [Concomitant]
     Active Substance: RISEDRONATE SODIUM
  10. FAMOTIDINE [Concomitant]
     Active Substance: FAMOTIDINE

REACTIONS (9)
  - Swollen tongue [Recovered/Resolved with Sequelae]
  - Head discomfort [Recovered/Resolved with Sequelae]
  - Blood pressure systolic decreased [Recovered/Resolved with Sequelae]
  - Blood pressure diastolic increased [Recovered/Resolved with Sequelae]
  - Chest discomfort [Recovered/Resolved with Sequelae]
  - Dizziness [Recovered/Resolved with Sequelae]
  - Fatigue [Recovered/Resolved with Sequelae]
  - Incorrect dose administered [Unknown]
  - Drug ineffective [Recovered/Resolved with Sequelae]

NARRATIVE: CASE EVENT DATE: 20250514
